FAERS Safety Report 10070768 (Version 1)
Quarter: 2014Q2

REPORT INFORMATION
  Report Type: Spontaneous
  Country: ES (occurrence: ES)
  Receive Date: 20140410
  Receipt Date: 20140410
  Transmission Date: 20141212
  Serious: Yes (Other)
  Sender: FDA-Public Use
  Company Number: ES-PFIZER INC-2014098968

PATIENT
  Age: 54 Year
  Sex: Male

DRUGS (5)
  1. SALAZOPYRINA [Suspect]
     Dosage: 1000 MG, 2X/DAY
     Route: 048
     Dates: start: 20130217, end: 20140127
  2. MOMETASONE [Concomitant]
     Indication: PSORIATIC ARTHROPATHY
     Dosage: UNK
     Route: 061
  3. ETORICOXIB [Concomitant]
     Dosage: 90 MG, 1X/DAY
     Route: 048
  4. OMEPRAZOLE [Concomitant]
     Dosage: 20 MG, 1X/DAY
     Route: 048
  5. CLOBETASOL [Concomitant]
     Dosage: UNK
     Route: 061

REACTIONS (4)
  - Pruritus [Recovered/Resolved]
  - Rash maculo-papular [Recovered/Resolved]
  - Koebner phenomenon [Recovered/Resolved]
  - Oral discomfort [Recovered/Resolved]
